FAERS Safety Report 7037914-2 (Version None)
Quarter: 2010Q4

REPORT INFORMATION
  Report Type: 
  Country: None (occurrence: None)
  Receive Date: 20101011
  Receipt Date: 20101004
  Transmission Date: 20110411
  Serious: Yes (Death)
  Sender: FDA-Public Use
  Company Number: GB-TEVA-248837ISR

PATIENT
  Age: 67 Year
  Sex: Male

DRUGS (2)
  1. TRAMADOL [Suspect]
     Indication: PRODUCT USED FOR UNKNOWN INDICATION
  2. FENTANYL [Interacting]
     Indication: ANALGESIC THERAPY
     Route: 062
     Dates: start: 20090917

REACTIONS (5)
  - DRUG INTERACTION [None]
  - DRUG TOXICITY [None]
  - EMPHYSEMA [None]
  - MYOCARDIAL ISCHAEMIA [None]
  - OVERDOSE [None]
